FAERS Safety Report 14698774 (Version 2)
Quarter: 2018Q2

REPORT INFORMATION
  Report Type: Spontaneous
  Country: US (occurrence: US)
  Receive Date: 20180330
  Receipt Date: 20180404
  Transmission Date: 20180711
  Serious: No
  Sender: FDA-Public Use
  Company Number: US-PFIZER INC-2017086620

PATIENT
  Age: 44 Year
  Sex: Female

DRUGS (12)
  1. POTASSIUM [Concomitant]
     Active Substance: POTASSIUM
     Dosage: 75 MG, 1X/DAY
     Route: 048
  2. VITRON-C [Concomitant]
     Active Substance: ASCORBIC ACID\IRON
     Dosage: UNK [ASCORBIC ACID 65 MG]/[FERROUS FUMARATE 125 MG]  AS DIRECTED
     Route: 048
  3. LISINOPRIL. [Concomitant]
     Active Substance: LISINOPRIL
     Dosage: 40 MG, 1X/DAY
     Route: 048
  4. LEVOTHYROXINE SODIUM. [Concomitant]
     Active Substance: LEVOTHYROXINE SODIUM
     Dosage: 75 UG, 1X/DAY [1 TABLET ON AN EMPTY STOMACH IN THE MORNING]
     Route: 048
     Dates: start: 20161220
  5. MOBIC [Concomitant]
     Active Substance: MELOXICAM
     Dosage: 15 MG, 1X/DAY
     Route: 048
     Dates: start: 20170210, end: 20170610
  6. LYRICA [Suspect]
     Active Substance: PREGABALIN
     Indication: INTERVERTEBRAL DISC DISORDER
     Dosage: 150 MG, 3X/DAY
     Route: 048
     Dates: start: 2012
  7. LYRICA [Suspect]
     Active Substance: PREGABALIN
     Indication: BACK PAIN
  8. VITAMIN B12 [Concomitant]
     Active Substance: CYANOCOBALAMIN
     Dosage: 1000 UG, 1X/DAY [2 TABLETS UNDER THE TONGUE AND ALLOW TO DISSOLVE ]
     Route: 060
  9. ERRIN [Concomitant]
     Active Substance: NORETHINDRONE
     Dosage: 0.35 MG, 1X/DAY
     Route: 048
  10. TIZANIDINE HCL [Concomitant]
     Active Substance: TIZANIDINE HYDROCHLORIDE
     Dosage: 4 MG, AS NEEDED [1 TABLET AS NEEDED ORALLY THREE TIMES A DAY]
     Route: 048
     Dates: start: 20170210, end: 20170610
  11. LASIX [Concomitant]
     Active Substance: FUROSEMIDE
     Dosage: 20 MG, 2X/DAY
     Route: 048
     Dates: start: 20161003
  12. TRAMADOL HCL [Concomitant]
     Active Substance: TRAMADOL HYDROCHLORIDE
     Dosage: 50 MG, AS NEEDED [1 TABLET AS NEEDED ORALLY Q HS PRN]
     Route: 048
     Dates: start: 20170210

REACTIONS (4)
  - Hyperhidrosis [Recovered/Resolved]
  - Withdrawal syndrome [Unknown]
  - Cold sweat [Recovered/Resolved]
  - Nausea [Recovered/Resolved]

NARRATIVE: CASE EVENT DATE: 2017
